FAERS Safety Report 22740844 (Version 3)
Quarter: 2025Q4

REPORT INFORMATION
  Report Type: Spontaneous
  Country: EU (occurrence: EU)
  Receive Date: 20230724
  Receipt Date: 20251121
  Transmission Date: 20260117
  Serious: Yes (Death, Life-Threatening, Hospitalization, Other)
  Sender: AUROBINDO
  Company Number: EU-ALM-HQ-ES-2023-1554

PATIENT
  Age: 65 Year

DRUGS (8)
  1. ACETAMINOPHEN [Suspect]
     Active Substance: ACETAMINOPHEN
     Indication: Product used for unknown indication
     Dosage: 20 GRAM (TOTAL)(APPROXIMATELY 20 GRAMS)
     Route: 065
  2. ZOLPIDEM [Suspect]
     Active Substance: ZOLPIDEM TARTRATE
     Indication: Product used for unknown indication
     Dosage: UNK
     Route: 065
  3. AMIODARONE [Suspect]
     Active Substance: AMIODARONE
     Indication: Atrial fibrillation
     Dosage: UNK
     Route: 065
  4. BROMAZEPAM [Suspect]
     Active Substance: BROMAZEPAM
     Indication: Product used for unknown indication
     Dosage: UNK
     Route: 065
  5. ALCOHOL [Concomitant]
     Active Substance: ALCOHOL
     Indication: Product used for unknown indication
     Dosage: UNK
     Route: 065
  6. FUROSEMIDE [Concomitant]
     Active Substance: FUROSEMIDE
     Indication: Atrial fibrillation
     Dosage: UNK
     Route: 065
  7. FLUMAZENIL [Concomitant]
     Active Substance: FLUMAZENIL
     Indication: Product used for unknown indication
     Dosage: UNK
     Route: 065
  8. ACETYLCYSTEINE [Concomitant]
     Active Substance: ACETYLCYSTEINE
     Indication: Product used for unknown indication
     Dosage: UNK
     Route: 065

REACTIONS (11)
  - Non-cardiogenic pulmonary oedema [Fatal]
  - Atrial fibrillation [Recovered/Resolved]
  - Liver disorder [Unknown]
  - Overdose [Recovered/Resolved]
  - Toxicity to various agents [Recovering/Resolving]
  - Liver injury [Recovering/Resolving]
  - Sinus node dysfunction [Recovered/Resolved]
  - Depressed level of consciousness [Unknown]
  - Procalcitonin increased [Unknown]
  - Hepatic function abnormal [Recovering/Resolving]
  - Suicide attempt [Recovered/Resolved]
